FAERS Safety Report 9113162 (Version 1)
Quarter: 2013Q1

REPORT INFORMATION
  Report Type: Report from Study
  Country: DE (occurrence: DE)
  Receive Date: 20130211
  Receipt Date: 20130211
  Transmission Date: 20140127
  Serious: Yes (Hospitalization)
  Sender: FDA-Public Use
  Company Number: DE-ABBOTT-13P-062-1047684-00

PATIENT
  Age: 44 Year
  Sex: Female
  Weight: 65 kg

DRUGS (2)
  1. HUMIRA (ABBOTT) [Suspect]
     Indication: ANKYLOSING SPONDYLITIS
     Route: 058
     Dates: start: 20090914
  2. IBUPROFEN [Concomitant]
     Indication: ANKYLOSING SPONDYLITIS
     Dates: start: 2009

REACTIONS (1)
  - Haematochezia [Recovered/Resolved]
